FAERS Safety Report 15316371 (Version 1)
Quarter: 2018Q3

REPORT INFORMATION
  Report Type: Spontaneous
  Country: US (occurrence: US)
  Receive Date: 20180824
  Receipt Date: 20180824
  Transmission Date: 20181010
  Serious: Yes (Death, Other)
  Sender: FDA-Public Use
  Company Number: US-SA-2018SA231703

PATIENT
  Age: 2 Year
  Sex: Female

DRUGS (1)
  1. CEREZYME [Suspect]
     Active Substance: IMIGLUCERASE
     Indication: GAUCHER^S DISEASE
     Dosage: 800MG, OVER 2 HOURS
     Route: 041

REACTIONS (5)
  - Thrombosis [Unknown]
  - Lower limb fracture [Unknown]
  - Pulmonary embolism [Unknown]
  - Osteoporosis [Unknown]
  - Respiratory failure [Fatal]

NARRATIVE: CASE EVENT DATE: 20150910
